FAERS Safety Report 8013558-0 (Version None)
Quarter: 2011Q4

REPORT INFORMATION
  Report Type: 
  Country: None (occurrence: None)
  Receive Date: 20111229
  Receipt Date: 20111222
  Transmission Date: 20120403
  Serious: Yes (Other)
  Sender: FDA-Public Use
  Company Number: ES-AMGEN-ESPSP2011068373

PATIENT
  Age: 80 Year
  Sex: Female

DRUGS (4)
  1. METFORMIN HCL [Concomitant]
     Indication: DIABETES MELLITUS
  2. ANTIDEPRESSANTS [Concomitant]
     Indication: DEPRESSION
  3. PROLIA [Suspect]
     Indication: PRODUCT USED FOR UNKNOWN INDICATION
     Dosage: UNK
     Dates: start: 20111205
  4. BENZODIAZEPINE DERIVATIVES [Concomitant]
     Indication: DEPRESSION

REACTIONS (3)
  - URINARY TRACT INFECTION [None]
  - CONFUSIONAL STATE [None]
  - DEPRESSION [None]
